FAERS Safety Report 8126279-0 (Version None)
Quarter: 2012Q1

REPORT INFORMATION
  Report Type: 
  Country: None (occurrence: None)
  Receive Date: 20120209
  Receipt Date: 20120206
  Transmission Date: 20120608
  Serious: No
  Sender: FDA-Public Use
  Company Number: US-BAYER-2012-013158

PATIENT
  Age: 49 Year
  Sex: Male
  Weight: 88 kg

DRUGS (2)
  1. EXFORGE [Concomitant]
     Dosage: UNK
  2. ALEVE (CAPLET) [Suspect]
     Indication: MUSCLE STRAIN
     Dosage: 1 DF, TID
     Route: 048
     Dates: start: 20120203, end: 20120205

REACTIONS (1)
  - HEART RATE INCREASED [None]
